FAERS Safety Report 7467654-7 (Version None)
Quarter: 2011Q2

REPORT INFORMATION
  Report Type: 
  Country: None (occurrence: None)
  Receive Date: 20110505
  Receipt Date: 20110505
  Transmission Date: 20111010
  Serious: No
  Sender: FDA-Public Use
  Company Number: None

PATIENT
  Sex: Female
  Weight: 124.2 kg

DRUGS (5)
  1. DEXAMETHASONE [Concomitant]
  2. CARBOPLATIN [Suspect]
     Dosage: 900 MG
  3. METFORMIN HCL [Concomitant]
  4. HUMULIN 70/30 [Concomitant]
  5. TAXOL [Suspect]
     Dosage: 350 MG

REACTIONS (5)
  - HAEMOGLOBIN DECREASED [None]
  - HAEMATOCRIT DECREASED [None]
  - BLOOD GLUCOSE INCREASED [None]
  - ECONOMIC PROBLEM [None]
  - NAUSEA [None]
